FAERS Safety Report 16954565 (Version 1)
Quarter: 2019Q4

REPORT INFORMATION
  Report Type: Spontaneous
  Country: US (occurrence: US)
  Receive Date: 20191023
  Receipt Date: 20191023
  Transmission Date: 20200122
  Serious: No
  Sender: FDA-Public Use
  Company Number: US-JNJFOC-20191029976

PATIENT
  Sex: Female
  Weight: 61.74 kg

DRUGS (1)
  1. MENS ROGAINE EXTRA STRENGTH [Suspect]
     Active Substance: MINOXIDIL
     Indication: ALOPECIA
     Dosage: AS IT SAYS ON THE LABEL, COVER SCALP, CROWN
     Route: 061

REACTIONS (2)
  - Product use issue [Unknown]
  - Intentional product misuse [Unknown]
